APPROVED DRUG PRODUCT: PROPRANOLOL HYDROCHLORIDE
Active Ingredient: PROPRANOLOL HYDROCHLORIDE
Strength: 40MG
Dosage Form/Route: TABLET;ORAL
Application: A070550 | Product #001
Applicant: WATSON LABORATORIES INC AN INDIRECT WHOLLY OWNED SUB OF TEVA PHARMACEUTICALS USA INC
Approved: Apr 11, 1986 | RLD: No | RS: No | Type: DISCN